FAERS Safety Report 6094641-6 (Version None)
Quarter: 2009Q1

REPORT INFORMATION
  Report Type: 
  Country: None (occurrence: None)
  Receive Date: 20090226
  Receipt Date: 20090216
  Transmission Date: 20090719
  Serious: Yes (Hospitalization, Other)
  Sender: FDA-Public Use
  Company Number: IT-WYE-H08323109

PATIENT
  Age: 72 Year
  Sex: Male

DRUGS (2)
  1. CORDARONE [Suspect]
     Indication: CARDIOVERSION
     Dosage: ABOUT 1200MG/WEEK
     Route: 048
     Dates: start: 20081001
  2. SINTROM [Concomitant]
     Indication: DRUG USE FOR UNKNOWN INDICATION

REACTIONS (3)
  - NEPHROTIC SYNDROME [None]
  - OEDEMA PERIPHERAL [None]
  - PROTEINURIA [None]
